FAERS Safety Report 9897824 (Version 2)
Quarter: 2014Q2

REPORT INFORMATION
  Report Type: Spontaneous
  Country: SE (occurrence: SE)
  Receive Date: 20140214
  Receipt Date: 20140429
  Transmission Date: 20141212
  Serious: Yes (Death)
  Sender: FDA-Public Use
  Company Number: SE-ASTRAZENECA-2014SE09751

PATIENT
  Age: 1 Day
  Sex: Male

DRUGS (3)
  1. XYLOCARD [Suspect]
     Indication: MUSCLE SPASMS
     Dates: start: 20131128
  2. XYLOCARD [Suspect]
     Indication: MUSCLE SPASMS
     Dates: start: 20131128
  3. XYLOCARD [Suspect]
     Indication: MUSCLE SPASMS
     Dates: start: 20131128

REACTIONS (6)
  - Asphyxia [Fatal]
  - Gastrointestinal haemorrhage [Fatal]
  - Coagulopathy [Fatal]
  - Brain hypoxia [Fatal]
  - Hypoxia [Fatal]
  - Off label use [Unknown]
